FAERS Safety Report 9953940 (Version 1)
Quarter: 2014Q1

REPORT INFORMATION
  Report Type: Spontaneous
  Country: US (occurrence: US)
  Receive Date: 20140304
  Receipt Date: 20140304
  Transmission Date: 20141002
  Serious: No
  Sender: FDA-Public Use
  Company Number: US-AMGEN-USASP2014004956

PATIENT
  Age: 62 Year
  Sex: Male
  Weight: 69.84 kg

DRUGS (1)
  1. ENBREL [Suspect]
     Indication: RHEUMATOID ARTHRITIS
     Dosage: 50 MG, QWK
     Route: 058

REACTIONS (7)
  - Ear congestion [Recovered/Resolved]
  - Raynaud^s phenomenon [Unknown]
  - Hypoaesthesia [Unknown]
  - Skin discolouration [Unknown]
  - Middle ear effusion [Recovered/Resolved]
  - Injection site bruising [Unknown]
  - Bronchitis [Recovered/Resolved]
